FAERS Safety Report 25431475 (Version 1)
Quarter: 2025Q2

REPORT INFORMATION
  Report Type: Spontaneous
  Country: US (occurrence: US)
  Receive Date: 20250613
  Receipt Date: 20250613
  Transmission Date: 20250716
  Serious: Yes (Other)
  Sender: CHEPLAPHARM
  Company Number: US-ROCHE-10000303931

PATIENT
  Age: 53 Year
  Sex: Female

DRUGS (3)
  1. CAPECITABINE [Suspect]
     Active Substance: CAPECITABINE
     Indication: Product used for unknown indication
  2. TUKYSA [Suspect]
     Active Substance: TUCATINIB
     Indication: Product used for unknown indication
     Dosage: STRENGTH: 300 MG?DAILY DOSE: 4 DOSAGE FORM
     Route: 048
     Dates: start: 202410
  3. TUKYSA [Suspect]
     Active Substance: TUCATINIB
     Indication: Product used for unknown indication
     Dosage: STRENGTH: 150 MG?DAILY DOSE: 4 DOSAGE FORM
     Route: 048

REACTIONS (4)
  - Metastases to central nervous system [Unknown]
  - Malignant neoplasm progression [Unknown]
  - Brain fog [Unknown]
  - Off label use [Unknown]
